FAERS Safety Report 6195994-0 (Version None)
Quarter: 2009Q2

REPORT INFORMATION
  Report Type: 
  Country: None (occurrence: None)
  Receive Date: 20090520
  Receipt Date: 20031215
  Transmission Date: 20091009
  Serious: Yes (Death)
  Sender: FDA-Public Use
  Company Number: NL-ROCHE-597591

PATIENT
  Sex: Male

DRUGS (2)
  1. CAPECITABINE [Suspect]
     Route: 048
     Dates: start: 20031111, end: 20031121
  2. IRINOTECAN HCL [Suspect]
     Route: 042
     Dates: start: 20031111, end: 20031121

REACTIONS (3)
  - MALAISE [None]
  - SEPSIS [None]
  - SKIN INFECTION [None]
